FAERS Safety Report 9290391 (Version 2)
Quarter: 2013Q2

REPORT INFORMATION
  Report Type: Report from Study
  Country: US (occurrence: US)
  Receive Date: 20130515
  Receipt Date: 20130605
  Transmission Date: 20140414
  Serious: No
  Sender: FDA-Public Use
  Company Number: US-VERTEX PHARMACEUTICALS INC-2013-006008

PATIENT
  Age: 57 Year
  Sex: Female

DRUGS (7)
  1. VX-950 (TELAPREVIR) [Suspect]
     Indication: HEPATITIS C
     Dosage: 750 MG, TID
     Route: 048
     Dates: start: 20130419
  2. PEGASYS [Suspect]
     Indication: HEPATITIS C
     Dosage: 180 ?G, WEEKLY
     Route: 058
     Dates: start: 20130419
  3. RIBAVIRIN [Suspect]
     Indication: HEPATITIS C
     Dosage: 600 MG, BID
     Route: 048
     Dates: start: 20130419
  4. EFFEXOR [Concomitant]
     Dosage: 150 MG, QD
  5. ATIVAN [Concomitant]
     Dosage: 0.5 MG, UNK
  6. NORTRIPTYLINE [Concomitant]
     Dosage: 25 MG, UNK
  7. GABAPENTIN [Concomitant]
     Dosage: 800 MG, UNK

REACTIONS (1)
  - Nausea [Not Recovered/Not Resolved]
